FAERS Safety Report 20648630 (Version 2)
Quarter: 2022Q1

REPORT INFORMATION
  Report Type: Spontaneous
  Country: US (occurrence: US)
  Receive Date: 20220329
  Receipt Date: 20220331
  Transmission Date: 20220423
  Serious: Yes (Other)
  Sender: FDA-Public Use
  Company Number: US-BAYER-2022A043067

PATIENT

DRUGS (3)
  1. ADEMPAS [Suspect]
     Active Substance: RIOCIGUAT
     Indication: Pulmonary hypertension
     Dosage: UNK
  2. SELEXIPAG [Concomitant]
     Active Substance: SELEXIPAG
  3. VERSUS [Concomitant]

REACTIONS (2)
  - Disease progression [None]
  - Right atrial pressure increased [None]
